FAERS Safety Report 5319171-8 (Version None)
Quarter: 2007Q1

REPORT INFORMATION
  Report Type: 
  Country: None (occurrence: None)
  Receive Date: 20070207
  Receipt Date: 20060218
  Transmission Date: 20070707
  Serious: Yes (Other)
  Sender: FDA-Public Use
  Company Number: 2006000127

PATIENT
  Age: 45 Year
  Sex: Female

DRUGS (1)
  1. DOSTINEX [Suspect]
     Indication: PROLACTIN-PRODUCING PITUITARY TUMOUR
     Dosage: 0.5 MG (TWICE/WEEKLY)

REACTIONS (5)
  - DECREASED APPETITE [None]
  - FATIGUE [None]
  - HEADACHE [None]
  - INSOMNIA [None]
  - WEIGHT FLUCTUATION [None]
